FAERS Safety Report 8359149-3 (Version None)
Quarter: 2012Q2

REPORT INFORMATION
  Report Type: 
  Country: None (occurrence: None)
  Receive Date: 20120511
  Receipt Date: 20120501
  Transmission Date: 20120825
  Serious: Yes (Life-Threatening, Hospitalization)
  Sender: FDA-Public Use
  Company Number: ADR-2009-7569

PATIENT
  Sex: Male

DRUGS (1)
  1. LIORESAL [Suspect]
     Indication: MUSCLE SPASTICITY
     Dosage: 25,444.6 MCG, DAILY, IN

REACTIONS (6)
  - LOWER RESPIRATORY TRACT INFECTION [None]
  - HYPOXIC-ISCHAEMIC ENCEPHALOPATHY [None]
  - CONVULSION [None]
  - CARDIO-RESPIRATORY ARREST [None]
  - LOSS OF CONSCIOUSNESS [None]
  - OVERDOSE [None]
